FAERS Safety Report 19119031 (Version 2)
Quarter: 2021Q2

REPORT INFORMATION
  Report Type: Report from Study
  Country: BR (occurrence: BR)
  Receive Date: 20210411
  Receipt Date: 20210419
  Transmission Date: 20210717
  Serious: Yes (Other)
  Sender: FDA-Public Use
  Company Number: BR-UCBSA-2020055055

PATIENT
  Age: 69 Year
  Sex: Male
  Weight: 88 kg

DRUGS (13)
  1. CERTOLIZUMAB PEGOL RA [Suspect]
     Active Substance: CERTOLIZUMAB PEGOL
     Indication: RHEUMATOID ARTHRITIS
     Dosage: 400 MILLIGRAM, EV 15 DAYS
     Route: 058
     Dates: start: 20201202
  2. CERTOLIZUMAB PEGOL RA [Suspect]
     Active Substance: CERTOLIZUMAB PEGOL
     Dosage: 400 MILLIGRAM, MONTHLY (QM)
     Route: 058
     Dates: end: 20210102
  3. METHOTREXATO [METHOTREXATE] [Concomitant]
     Indication: ARTHRITIS
     Dosage: 2.5 MILLIGRAM, WEEKLY (QW)
     Route: 048
     Dates: start: 2016
  4. VITAMIN D 7000 [Concomitant]
     Dosage: 7000 INTERNATIONAL UNIT, WEEKLY (QW)
     Route: 048
     Dates: start: 2020
  5. GLIFAGE [Concomitant]
     Active Substance: METFORMIN HYDROCHLORIDE
     Indication: DIABETES MELLITUS
     Dosage: UNK
     Route: 048
     Dates: start: 2019
  6. METROTEXATO [Concomitant]
     Dosage: 2.5 MILLIGRAM, WEEKLY (QW)
     Route: 048
     Dates: start: 2016
  7. POTASSIUM PERMANGANATE [Concomitant]
     Active Substance: POTASSIUM PERMANGANATE
     Indication: CANDIDA INFECTION
     Dosage: 2 X A DAY AMPULES
     Route: 061
  8. CERTOLIZUMAB PEGOL RA [Suspect]
     Active Substance: CERTOLIZUMAB PEGOL
     Dosage: 400 MILLIGRAM, EV 30 DAYS
     Route: 058
     Dates: start: 202101, end: 20210405
  9. CETOBETA [Concomitant]
     Indication: CANDIDA INFECTION
     Dosage: 20 MILLIGRAM, 2X/DAY (BID)
     Route: 061
     Dates: start: 2021
  10. CIMZIA [Suspect]
     Active Substance: CERTOLIZUMAB PEGOL
     Dosage: 400 MILLIGRAM, MONTHLY (QM)
     Route: 058
     Dates: start: 202101, end: 20210405
  11. ESOMEPRAZOLE MAGNESIUM. [Concomitant]
     Active Substance: ESOMEPRAZOLE MAGNESIUM
     Indication: NAUSEA
     Dosage: UNK
     Route: 048
  12. DIPIRONA [Concomitant]
     Active Substance: METAMIZOLE
     Indication: PAIN
     Dosage: 1000 MILLIGRAM, UNK
     Route: 048
  13. VITAMIN D [ERGOCALCIFEROL] [Concomitant]
     Active Substance: ERGOCALCIFEROL
     Indication: IMMUNODEFICIENCY
     Dosage: 7000 UI
     Route: 048
     Dates: start: 2020

REACTIONS (13)
  - Somnolence [Recovering/Resolving]
  - Musculoskeletal stiffness [Recovering/Resolving]
  - Inappropriate schedule of product administration [Unknown]
  - Candida infection [Recovering/Resolving]
  - Weight decreased [Recovered/Resolved]
  - COVID-19 immunisation [Unknown]
  - Fatigue [Recovering/Resolving]
  - Arthralgia [Recovered/Resolved]
  - Visual acuity reduced [Recovering/Resolving]
  - Neck pain [Recovering/Resolving]
  - Therapeutic product effect incomplete [Unknown]
  - Intentional dose omission [Unknown]
  - Nausea [Recovered/Resolved]

NARRATIVE: CASE EVENT DATE: 202012
